FAERS Safety Report 15786133 (Version 1)
Quarter: 2019Q1

REPORT INFORMATION
  Report Type: Spontaneous
  Country: US (occurrence: US)
  Receive Date: 20190103
  Receipt Date: 20190103
  Transmission Date: 20190417
  Serious: No
  Sender: FDA-Public Use
  Company Number: US-SA-2019SA000870

PATIENT
  Sex: Female

DRUGS (1)
  1. DULCOLAX (BISACODYL) [Suspect]
     Active Substance: BISACODYL
     Dosage: 2 DF
     Route: 048
     Dates: start: 20181227

REACTIONS (4)
  - Vomiting [Unknown]
  - Cold sweat [Unknown]
  - Muscle spasms [Unknown]
  - Diarrhoea [Unknown]
